FAERS Safety Report 22338253 (Version 1)
Quarter: 2023Q2

REPORT INFORMATION
  Report Type: Spontaneous
  Country: US (occurrence: None)
  Receive Date: 20230518
  Receipt Date: 20230518
  Transmission Date: 20230721
  Serious: No
  Sender: FDA-Public Use
  Company Number: US-ROCHE-3241243

PATIENT

DRUGS (12)
  1. ACTEMRA [Suspect]
     Active Substance: TOCILIZUMAB
     Indication: Giant cell arteritis
     Route: 058
     Dates: start: 20221116
  2. ACTEMRA [Suspect]
     Active Substance: TOCILIZUMAB
  3. AMLODIPINE [Concomitant]
     Active Substance: AMLODIPINE BESYLATE
  4. ASPIRIN [Concomitant]
     Active Substance: ASPIRIN
  5. CALCIUM [Concomitant]
     Active Substance: CALCIUM
  6. ERGOCALCIFEROL [Concomitant]
     Active Substance: ERGOCALCIFEROL
  7. RESTASIS [Concomitant]
     Active Substance: CYCLOSPORINE
  8. FOLIC ACID [Concomitant]
     Active Substance: FOLIC ACID
  9. LATANOPROST [Concomitant]
     Active Substance: LATANOPROST
  10. OMEPRAZOLE [Concomitant]
     Active Substance: OMEPRAZOLE
  11. CRESTOR [Concomitant]
     Active Substance: ROSUVASTATIN CALCIUM
  12. TIMOLOL [Concomitant]
     Active Substance: TIMOLOL

REACTIONS (2)
  - Product storage error [Unknown]
  - No adverse event [Unknown]
